FAERS Safety Report 9988694 (Version 1)
Quarter: 2014Q1

REPORT INFORMATION
  Report Type: Spontaneous
  Country: IN (occurrence: IN)
  Receive Date: 20140310
  Receipt Date: 20140310
  Transmission Date: 20141002
  Serious: Yes (Death)
  Sender: FDA-Public Use
  Company Number: IN-MERCK-1403IND002458

PATIENT
  Age: 72 Year
  Sex: Male
  Weight: 80 kg

DRUGS (1)
  1. JANUVIA [Suspect]
     Dosage: 100 MG, 1 TAB, QD
     Route: 048

REACTIONS (1)
  - Death [Fatal]
